FAERS Safety Report 22016380 (Version 3)
Quarter: 2023Q2

REPORT INFORMATION
  Report Type: Report from Study
  Country: US (occurrence: US)
  Receive Date: 20230221
  Receipt Date: 20230420
  Transmission Date: 20230722
  Serious: Yes (Hospitalization, Other)
  Sender: FDA-Public Use
  Company Number: US-TAKEDA-2023TUS004473

PATIENT
  Sex: Female
  Weight: 53 kg

DRUGS (19)
  1. LANADELUMAB [Suspect]
     Active Substance: LANADELUMAB
     Indication: Immune system disorder
     Dosage: 300 MILLIGRAM, Q2WEEKS
     Route: 058
     Dates: start: 20221224
  2. ADDERALL [Concomitant]
     Active Substance: AMPHETAMINE ASPARTATE\AMPHETAMINE SULFATE\DEXTROAMPHETAMINE SACCHARATE\DEXTROAMPHETAMINE SULFATE
  3. CATAPRES-TTS [Concomitant]
     Active Substance: CLONIDINE
  4. XGEVA [Concomitant]
     Active Substance: DENOSUMAB
  5. SINGULAIR [Concomitant]
     Active Substance: MONTELUKAST SODIUM
  6. PROZAC [Concomitant]
     Active Substance: FLUOXETINE HYDROCHLORIDE
  7. XOLAIR [Concomitant]
     Active Substance: OMALIZUMAB
  8. LOVENOX [Concomitant]
     Active Substance: ENOXAPARIN SODIUM
  9. MIDODRINE HYDROCHLORIDE [Concomitant]
     Active Substance: MIDODRINE HYDROCHLORIDE
  10. ZYRTEC [Concomitant]
     Active Substance: CETIRIZINE HYDROCHLORIDE
  11. PEPCID [Concomitant]
     Active Substance: FAMOTIDINE
  12. EPINEPHRINE [Concomitant]
     Active Substance: EPINEPHRINE
  13. MAGNESIUM [Concomitant]
     Active Substance: MAGNESIUM
  14. POTASSIUM CHLORIDE [Concomitant]
     Active Substance: POTASSIUM CHLORIDE
  15. RIBOFLAVIN [Concomitant]
     Active Substance: RIBOFLAVIN
  16. CITRACAL PLUS D [Concomitant]
  17. PREDNISONE [Concomitant]
     Active Substance: PREDNISONE
  18. SOLU-CORTEF [Concomitant]
     Active Substance: HYDROCORTISONE SODIUM SUCCINATE
  19. RISPERIDONE [Concomitant]
     Active Substance: RISPERIDONE

REACTIONS (4)
  - Blood disorder [Unknown]
  - Angioedema [Unknown]
  - Hereditary angioedema [Not Recovered/Not Resolved]
  - Hypersensitivity [Unknown]
